FAERS Safety Report 24449928 (Version 1)
Quarter: 2024Q4

REPORT INFORMATION
  Report Type: Spontaneous
  Country: IN (occurrence: IN)
  Receive Date: 20241017
  Receipt Date: 20241017
  Transmission Date: 20250114
  Serious: Yes (Other)
  Sender: PFIZER
  Company Number: IN-PFIZER INC-PV202400054506

PATIENT
  Age: 56 Year
  Sex: Male

DRUGS (1)
  1. CRIZOTINIB [Suspect]
     Active Substance: CRIZOTINIB
     Dosage: 250 MG, 2X/DAY
     Route: 048
     Dates: start: 202306

REACTIONS (3)
  - Oxygen saturation decreased [Unknown]
  - Hypotension [Unknown]
  - Eastern Cooperative Oncology Group performance status abnormal [Unknown]

NARRATIVE: CASE EVENT DATE: 20240928
